FAERS Safety Report 14353457 (Version 2)
Quarter: 2018Q1

REPORT INFORMATION
  Report Type: Spontaneous
  Country: IN (occurrence: IN)
  Receive Date: 20180105
  Receipt Date: 20180112
  Transmission Date: 20180509
  Serious: Yes (Congenital Anomaly, Other)
  Sender: FDA-Public Use
  Company Number: IN-SUN PHARMACEUTICAL INDUSTRIES LTD-2017R1-158782

PATIENT

DRUGS (4)
  1. OLANZAPINE. [Suspect]
     Active Substance: OLANZAPINE
     Indication: BIPOLAR DISORDER
     Dosage: NIGHT
     Route: 064
  2. SERTRALINE [Suspect]
     Active Substance: SERTRALINE HYDROCHLORIDE
     Dosage: SINCE 4 YEARS TILL THIRD TRIMESTER OF PREGNANCY
     Route: 064
  3. OLANZAPINE. [Suspect]
     Active Substance: OLANZAPINE
     Dosage: NIGHT, SINCE 4 YEARS TILL THIRD TRIMESTER OF PREGNANCY
     Route: 064
  4. SERTRALINE [Suspect]
     Active Substance: SERTRALINE HYDROCHLORIDE
     Indication: BIPOLAR DISORDER
     Dosage: 150 MG, QD
     Route: 064

REACTIONS (19)
  - Micrognathia [Unknown]
  - Oedema [Unknown]
  - Cyanosis [Unknown]
  - Hypokinesia [Unknown]
  - Hypertension neonatal [Unknown]
  - Polyhydramnios [Unknown]
  - Single umbilical artery [Unknown]
  - Heart rate decreased [Unknown]
  - Dyspnoea [Unknown]
  - Finger deformity [Unknown]
  - Foetal exposure during pregnancy [Unknown]
  - Wrist deformity [Unknown]
  - Neck deformity [Unknown]
  - Congenital choroid plexus cyst [Unknown]
  - Areflexia [Unknown]
  - Limb deformity [Unknown]
  - Talipes [Unknown]
  - Teratogenicity [Unknown]
  - Subgaleal haematoma [Unknown]
